FAERS Safety Report 9376905 (Version 1)
Quarter: 2013Q3

REPORT INFORMATION
  Report Type: Spontaneous
  Country: FR (occurrence: FR)
  Receive Date: 20130701
  Receipt Date: 20130701
  Transmission Date: 20140515
  Serious: Yes (Congenital Anomaly, Other)
  Sender: FDA-Public Use
  Company Number: PHHY2013FR067101

PATIENT
  Sex: 0

DRUGS (2)
  1. EXFORGE [Suspect]
     Dosage: (MOTHER AT A DOSE OF 2 DF QD), UNK
     Route: 064
  2. ALDOMET [Concomitant]
     Dosage: (MOTHER WAS TAKING 250 MG CONCENTRATION), UNK
     Route: 064

REACTIONS (4)
  - Deformity [Unknown]
  - Foetal growth restriction [Unknown]
  - Renal aplasia [Unknown]
  - Foetal exposure during pregnancy [Unknown]
